FAERS Safety Report 6515380-0 (Version None)
Quarter: 2009Q4

REPORT INFORMATION
  Report Type: 
  Country: None (occurrence: None)
  Receive Date: 20091223
  Receipt Date: 20091209
  Transmission Date: 20100525
  Serious: Yes (Hospitalization)
  Sender: FDA-Public Use
  Company Number: PHHY2009GB54950

PATIENT
  Sex: Male

DRUGS (1)
  1. CLOZARIL [Suspect]
     Indication: SCHIZOPHRENIA
     Dosage: 900 MG, UNK
     Dates: start: 19980901, end: 20091209

REACTIONS (3)
  - FALL [None]
  - GRAND MAL CONVULSION [None]
  - LOWER LIMB FRACTURE [None]
